FAERS Safety Report 21519711 (Version 1)
Quarter: 2022Q4

REPORT INFORMATION
  Report Type: Spontaneous
  Country: US (occurrence: US)
  Receive Date: 20221028
  Receipt Date: 20221028
  Transmission Date: 20230113
  Serious: Yes (Other)
  Sender: FDA-Public Use
  Company Number: US-AMGEN-USASP2022182740

PATIENT
  Age: 38 Year
  Sex: Male
  Weight: 56.689 kg

DRUGS (1)
  1. INFLIXIMAB [Suspect]
     Active Substance: INFLIXIMAB
     Indication: Hidradenitis
     Dosage: 7.5 MILLIGRAM PER KILOGRAM, QMO (FOR SIX MONTHS)
     Route: 065
     Dates: start: 202101

REACTIONS (6)
  - Disseminated tuberculosis [Unknown]
  - Off label use [Unknown]
  - Hidradenitis [Unknown]
  - Hypotension [Unknown]
  - Tachycardia [Unknown]
  - COVID-19 [Unknown]
